FAERS Safety Report 14078773 (Version 1)
Quarter: 2017Q4

REPORT INFORMATION
  Report Type: Spontaneous
  Country: US (occurrence: US)
  Receive Date: 20171012
  Receipt Date: 20171012
  Transmission Date: 20180321
  Serious: No
  Sender: FDA-Public Use
  Company Number: US-MYLANLABS-2017M1022523

PATIENT
  Sex: Female
  Weight: 78.46 kg

DRUGS (2)
  1. EMSAM [Suspect]
     Active Substance: SELEGILINE
     Indication: DEPRESSION
     Dosage: 1 DF, QD
     Route: 062
  2. EMSAM [Suspect]
     Active Substance: SELEGILINE
     Indication: DEPRESSION
     Dosage: 1 DF, QD
     Route: 062

REACTIONS (1)
  - Off label use [Unknown]
